FAERS Safety Report 11490780 (Version 1)
Quarter: 2015Q3

REPORT INFORMATION
  Report Type: Spontaneous
  Country: ES (occurrence: ES)
  Receive Date: 20150910
  Receipt Date: 20150910
  Transmission Date: 20151125
  Serious: Yes (Other)
  Sender: FDA-Public Use
  Company Number: ES-AMGEN-ESPSP2015091692

PATIENT
  Sex: Female

DRUGS (2)
  1. MIMPARA [Suspect]
     Active Substance: CINACALCET HYDROCHLORIDE
     Indication: HYPERPARATHYROIDISM
     Dosage: 30 MG, 1 VEZ AL DIA
     Route: 048
     Dates: start: 20150720
  2. APROVEL, 300, MG COMPRIMIDOS RECUBIERTOS CON PELICULA, 28 COMPRIMIDOS [Concomitant]
     Indication: HYPERTENSION
     Dosage: 300 MG,
     Route: 048

REACTIONS (3)
  - Erythema [Recovered/Resolved]
  - Pyrexia [Recovered/Resolved]
  - Hypertensive crisis [Recovered/Resolved]

NARRATIVE: CASE EVENT DATE: 20150804
